FAERS Safety Report 4957697-7 (Version None)
Quarter: 2006Q1

REPORT INFORMATION
  Report Type: 
  Country: None (occurrence: None)
  Receive Date: 20060330
  Receipt Date: 20060322
  Transmission Date: 20060701
  Serious: Yes (Hospitalization)
  Sender: FDA-Public Use
  Company Number: JP-JNJFOC-20060206143

PATIENT
  Age: 79 Year
  Sex: Male

DRUGS (8)
  1. OFLOCET [Suspect]
     Route: 048
     Dates: start: 20050917, end: 20050929
  2. AUGMENTIN '125' [Suspect]
     Route: 048
     Dates: start: 20050917, end: 20050926
  3. AUGMENTIN '125' [Suspect]
     Route: 048
     Dates: start: 20050917, end: 20050926
  4. DICYNONE [Suspect]
     Indication: THROMBOTIC THROMBOCYTOPENIC PURPURA
     Route: 048
     Dates: start: 20050917, end: 20050928
  5. APROVEL [Concomitant]
     Indication: ESSENTIAL HYPERTENSION
     Route: 048
  6. ALEPSAL [Concomitant]
     Route: 048
  7. ALEPSAL [Concomitant]
     Route: 048
  8. ALEPSAL [Concomitant]
     Route: 048

REACTIONS (7)
  - ACUTE GENERALISED EXANTHEMATOUS PUSTULOSIS [None]
  - ALANINE AMINOTRANSFERASE INCREASED [None]
  - ASPARTATE AMINOTRANSFERASE INCREASED [None]
  - BLOOD ALKALINE PHOSPHATASE INCREASED [None]
  - GAMMA-GLUTAMYLTRANSFERASE INCREASED [None]
  - LEUKOCYTOCLASTIC VASCULITIS [None]
  - TOXIC SKIN ERUPTION [None]
